FAERS Safety Report 8025633-5 (Version None)
Quarter: 2012Q1

REPORT INFORMATION
  Report Type: 
  Country: None (occurrence: None)
  Receive Date: 20120105
  Receipt Date: 20111230
  Transmission Date: 20120608
  Serious: No
  Sender: FDA-Public Use
  Company Number: US-BAYER-2012-001134

PATIENT
  Age: 77 Year
  Sex: Female
  Weight: 46 kg

DRUGS (4)
  1. ALEVE (CAPLET) [Suspect]
     Indication: ARTHRITIS
     Dosage: 1 TAB, QD
     Route: 048
     Dates: start: 20111223, end: 20111229
  2. LISINOPRIL [Concomitant]
  3. AMLODIPINE [Concomitant]
  4. CENTRUM SILVER [Concomitant]

REACTIONS (1)
  - OEDEMA PERIPHERAL [None]
